FAERS Safety Report 10952597 (Version 1)
Quarter: 2015Q1

REPORT INFORMATION
  Report Type: Spontaneous
  Country: US (occurrence: None)
  Receive Date: 20150324
  Receipt Date: 20150324
  Transmission Date: 20150721
  Serious: No
  Sender: FDA-Public Use
  Company Number: None

PATIENT
  Age: 49 Year
  Sex: Female

DRUGS (1)
  1. VALSARTAN. [Suspect]
     Active Substance: VALSARTAN
     Indication: HYPERTENSION
     Dosage: 2 X 160MG TABLETS DAILY P.O.
     Route: 048

REACTIONS (2)
  - Product contamination physical [None]
  - Product quality issue [None]

NARRATIVE: CASE EVENT DATE: 20141202
